FAERS Safety Report 6032306-7 (Version None)
Quarter: 2008Q4

REPORT INFORMATION
  Report Type: 
  Country: None (occurrence: None)
  Receive Date: 20081222
  Receipt Date: 20081110
  Transmission Date: 20090506
  Serious: No
  Sender: FDA-Public Use
  Company Number: US-WYE-H06806108

PATIENT
  Age: 48 Year
  Sex: Female
  Weight: 81.27 kg

DRUGS (4)
  1. PRISTIQ [Suspect]
     Indication: DEPRESSION
     Dosage: 50 MG 1X PER 1 DAY, ORAL
     Route: 048
     Dates: start: 20081106
  2. KLONOPIN [Concomitant]
  3. AVONEX [Concomitant]
  4. NEURONTIN [Concomitant]

REACTIONS (5)
  - APPETITE DISORDER [None]
  - DYSGEUSIA [None]
  - NAUSEA [None]
  - SLEEP DISORDER [None]
  - TERMINAL INSOMNIA [None]
